FAERS Safety Report 19900724 (Version 1)
Quarter: 2021Q3

REPORT INFORMATION
  Report Type: Spontaneous
  Country: US (occurrence: US)
  Receive Date: 20210930
  Receipt Date: 20210930
  Transmission Date: 20211014
  Serious: Yes (Other)
  Sender: FDA-Public Use
  Company Number: US-ENDO PHARMACEUTICALS INC-2021-011418

PATIENT
  Sex: Female

DRUGS (1)
  1. BOSENTAN. [Suspect]
     Active Substance: BOSENTAN
     Indication: PULMONARY ARTERIAL HYPERTENSION
     Dosage: 125 MG, BID
     Route: 048
     Dates: start: 20190803

REACTIONS (13)
  - Rectal haemorrhage [Unknown]
  - Diarrhoea [Not Recovered/Not Resolved]
  - Eye disorder [Unknown]
  - Atrial fibrillation [Unknown]
  - Lower limb fracture [Unknown]
  - Dry eye [Unknown]
  - Oedema peripheral [Not Recovered/Not Resolved]
  - Thyroid disorder [Unknown]
  - Bone density abnormal [Unknown]
  - Diabetes mellitus [Unknown]
  - Vomiting [Unknown]
  - Wrist fracture [Unknown]
  - Vertigo [Unknown]
